FAERS Safety Report 15651336 (Version 3)
Quarter: 2018Q4

REPORT INFORMATION
  Report Type: Report from Study
  Country: JP (occurrence: JP)
  Receive Date: 20181123
  Receipt Date: 20181231
  Transmission Date: 20190205
  Serious: Yes (Death, Other)
  Sender: FDA-Public Use
  Company Number: JP-AMGEN-JPNNI2018166573

PATIENT
  Age: 68 Year
  Sex: Male
  Weight: 47.9 kg

DRUGS (7)
  1. ETELCALCETIDE [Suspect]
     Active Substance: ETELCALCETIDE
     Dosage: 12.5 MG, 3 TIMES/WK
     Route: 042
     Dates: start: 20180118, end: 20180207
  2. ETELCALCETIDE [Suspect]
     Active Substance: ETELCALCETIDE
     Dosage: 7.5 MG, 3 TIMES/WK
     Route: 042
     Dates: start: 20171114, end: 20171211
  3. ETELCALCETIDE [Suspect]
     Active Substance: ETELCALCETIDE
     Dosage: 10 MG, 3 TIMES/WK
     Route: 042
     Dates: start: 20171212, end: 20180117
  4. FOSRENOL [Concomitant]
     Active Substance: LANTHANUM CARBONATE
     Indication: HYPERPHOSPHATAEMIA
     Dosage: 1750 MG, QD
     Route: 048
  5. ETELCALCETIDE [Suspect]
     Active Substance: ETELCALCETIDE
     Indication: HYPERPARATHYROIDISM SECONDARY
     Dosage: 5 MG, 3 TIMES/WK
     Route: 042
     Dates: start: 20171017, end: 20171113
  6. ETELCALCETIDE [Suspect]
     Active Substance: ETELCALCETIDE
     Dosage: 15 MG, 3 TIMES/WK
     Route: 042
     Dates: start: 20180208, end: 20180308
  7. OXAROL [Concomitant]
     Active Substance: MAXACALCITOL
     Dosage: 2.5 MUG, QD
     Route: 042
     Dates: start: 20171212, end: 20180220

REACTIONS (2)
  - Cerebral haemorrhage [Fatal]
  - Chest discomfort [Recovering/Resolving]

NARRATIVE: CASE EVENT DATE: 20171130
